FAERS Safety Report 8544293-8 (Version None)
Quarter: 2012Q3

REPORT INFORMATION
  Report Type: 
  Country: None (occurrence: None)
  Receive Date: 20120727
  Receipt Date: 20120723
  Transmission Date: 20120928
  Serious: Yes (Hospitalization, Other)
  Sender: FDA-Public Use
  Company Number: US-TEVA-350147USA

PATIENT
  Age: 4 Month
  Sex: Female

DRUGS (2)
  1. BUPRENORPHINE [Suspect]
     Route: 063
  2. BUPRENORPHINE [Suspect]
     Route: 064

REACTIONS (11)
  - TREMOR [None]
  - AGITATION [None]
  - SNEEZING [None]
  - INSOMNIA [None]
  - HYPERREFLEXIA [None]
  - EXPOSURE DURING BREAST FEEDING [None]
  - YAWNING [None]
  - MYDRIASIS [None]
  - HYPERHIDROSIS [None]
  - MYOCLONUS [None]
  - FOETAL EXPOSURE DURING PREGNANCY [None]
